FAERS Safety Report 21761300 (Version 1)
Quarter: 2022Q4

REPORT INFORMATION
  Report Type: Report from Study
  Country: DE (occurrence: DE)
  Receive Date: 20221221
  Receipt Date: 20221221
  Transmission Date: 20230112
  Serious: Yes (Other)
  Sender: FDA-Public Use
  Company Number: DE-TAKEDA-2022TUS098245

PATIENT
  Sex: Female

DRUGS (8)
  1. LANADELUMAB [Suspect]
     Active Substance: LANADELUMAB
     Indication: Hereditary angioedema
     Dosage: 300 MILLIGRAM, Q2WEEKS
     Route: 065
     Dates: start: 20200806
  2. ACETAMINOPHEN [Concomitant]
     Active Substance: ACETAMINOPHEN
     Indication: Migraine
     Dosage: 500 MILLIGRAM
     Route: 048
     Dates: start: 2020
  3. NAPROXEN [Concomitant]
     Active Substance: NAPROXEN
     Indication: Migraine
     Dosage: 500 MILLIGRAM
     Route: 048
     Dates: start: 2020
  4. SUMATRIPTAN [Concomitant]
     Active Substance: SUMATRIPTAN
     Indication: Migraine
     Dosage: 50 MILLIGRAM
     Route: 048
     Dates: start: 2020
  5. COMIRNATY [Concomitant]
     Active Substance: TOZINAMERAN
     Indication: COVID-19 immunisation
     Dosage: 1 DOSAGE FORM
     Route: 030
     Dates: start: 20210124, end: 20210124
  6. COMIRNATY [Concomitant]
     Active Substance: TOZINAMERAN
     Dosage: 1 DOSAGE FORM
     Route: 030
     Dates: start: 20210214, end: 20210214
  7. AZITHROMYCIN [Concomitant]
     Active Substance: AZITHROMYCIN
     Indication: Nasopharyngitis
     Dosage: 500 MILLIGRAM
     Route: 048
     Dates: start: 20210228, end: 20210302
  8. ALBUTEROL [Concomitant]
     Active Substance: ALBUTEROL
     Indication: Nasopharyngitis
     Dosage: UNK
     Route: 055
     Dates: start: 20210228, end: 20210302

REACTIONS (1)
  - Abortion spontaneous [Recovered/Resolved]

NARRATIVE: CASE EVENT DATE: 20221201
